FAERS Safety Report 5305932-8 (Version None)
Quarter: 2007Q2

REPORT INFORMATION
  Report Type: 
  Country: None (occurrence: None)
  Receive Date: 20070424
  Receipt Date: 20070416
  Transmission Date: 20071010
  Serious: Yes (Hospitalization)
  Sender: FDA-Public Use
  Company Number: 491454

PATIENT
  Age: 58 Year
  Sex: Male

DRUGS (11)
  1. ARTIST [Suspect]
     Indication: DRUG USE FOR UNKNOWN INDICATION
     Route: 048
  2. NICORETTE [Suspect]
     Route: 048
     Dates: start: 20070115, end: 20070221
  3. TICLOPIDINE HCL [Concomitant]
  4. ASPIRIN [Concomitant]
  5. BLOPRESS [Concomitant]
  6. ISOSORBIDE MONONITRATE [Concomitant]
  7. LIPITOR [Concomitant]
  8. SENNA [Concomitant]
  9. AMOBAN [Concomitant]
  10. BIOFERMIN [Concomitant]
  11. NOVOLIN 50/50 [Concomitant]

REACTIONS (3)
  - ARRHYTHMIA [None]
  - CHEST DISCOMFORT [None]
  - PALPITATIONS [None]
